FAERS Safety Report 5104447-X (Version None)
Quarter: 2006Q3

REPORT INFORMATION
  Report Type: 
  Country: None (occurrence: None)
  Receive Date: 20060914
  Receipt Date: 20060905
  Transmission Date: 20061208
  Serious: Yes (Death, Other)
  Sender: FDA-Public Use
  Company Number: US-BRISTOL-MYERS SQUIBB COMPANY-13507066

PATIENT
  Age: 32 Year
  Sex: Male

DRUGS (2)
  1. AMPHOTERICIN B [Suspect]
     Indication: CRYPTOCOCCOSIS
     Dosage: (0.5 MG/KG/DAY)
  2. CHLORPROMAZINE [Concomitant]

REACTIONS (2)
  - BLOOD BILIRUBIN INCREASED [None]
  - HEPATOTOXICITY [None]
